FAERS Safety Report 9116984 (Version 1)
Quarter: 2013Q1

REPORT INFORMATION
  Report Type: Spontaneous
  Country: US (occurrence: US)
  Receive Date: 20130225
  Receipt Date: 20130225
  Transmission Date: 20140127
  Serious: Yes (Hospitalization, Other)
  Sender: FDA-Public Use
  Company Number: US-JNJFOC-20090901385

PATIENT
  Age: 56 None
  Sex: Male
  Weight: 68.04 kg

DRUGS (1)
  1. LEVAQUIN [Suspect]
     Indication: LOWER RESPIRATORY TRACT INFECTION
     Dosage: 15 DAY SUPPLY
     Route: 048
     Dates: start: 20071114, end: 20071129

REACTIONS (3)
  - Tenosynovitis [Unknown]
  - Tendon rupture [Recovering/Resolving]
  - Tendonitis [Unknown]
